FAERS Safety Report 21099470 (Version 1)
Quarter: 2022Q3

REPORT INFORMATION
  Report Type: Spontaneous
  Country: DE (occurrence: DE)
  Receive Date: 20220719
  Receipt Date: 20220719
  Transmission Date: 20221027
  Serious: Yes (Other)
  Sender: FDA-Public Use
  Company Number: DE-FreseniusKabi-FK202207292

PATIENT
  Age: 39 Year
  Sex: Female

DRUGS (4)
  1. CLINDAMYCIN HYDROCHLORIDE [Suspect]
     Active Substance: CLINDAMYCIN HYDROCHLORIDE
     Indication: Dental care
     Dosage: 0.5 A DAY, MID APRIL 2022- MID MAY 2022
     Route: 048
     Dates: start: 202204, end: 202205
  2. IBUPROFEN [Suspect]
     Active Substance: IBUPROFEN
     Indication: Dental care
     Dosage: MID APRIL 2022- MID MAY 2022 DOSE: 4
     Route: 048
     Dates: start: 202204, end: 202205
  3. IBUPROFEN [Suspect]
     Active Substance: IBUPROFEN
     Route: 048
  4. ADALIMUMAB [Suspect]
     Active Substance: ADALIMUMAB
     Indication: Hidradenitis
     Dosage: 40 MG, WEEKLY
     Route: 058
     Dates: start: 2021

REACTIONS (1)
  - Abortion early [Unknown]
